FAERS Safety Report 6757736-7 (Version None)
Quarter: 2010Q2

REPORT INFORMATION
  Report Type: 
  Country: None (occurrence: None)
  Receive Date: 20100607
  Receipt Date: 20100527
  Transmission Date: 20101027
  Serious: Yes (Other)
  Sender: FDA-Public Use
  Company Number: US-BAYER-201017385NA

PATIENT
  Age: 33 Year
  Sex: Female

DRUGS (1)
  1. MIRENA [Suspect]
     Indication: MENORRHAGIA
     Dosage: FREQUENCY: CONTINUOUS
     Route: 015
     Dates: start: 20100101

REACTIONS (6)
  - ABDOMINAL PAIN [None]
  - CRYING [None]
  - DEPRESSION [None]
  - FEELING ABNORMAL [None]
  - MENORRHAGIA [None]
  - VAGINAL INFECTION [None]
